FAERS Safety Report 4318176-3 (Version None)
Quarter: 2004Q1

REPORT INFORMATION
  Report Type: 
  Country: None (occurrence: None)
  Receive Date: 20040317
  Receipt Date: 20040308
  Transmission Date: 20041129
  Serious: Yes (Hospitalization)
  Sender: FDA-Public Use
  Company Number: GB-ROCHE-361148

PATIENT
  Age: 42 Year
  Sex: Female

DRUGS (2)
  1. ORLISTAT [Suspect]
     Indication: OBESITY
     Route: 048
     Dates: start: 20031215, end: 20040223
  2. CODEINE AND PARACETAMOL [Concomitant]
     Indication: BACK PAIN
     Dosage: TRADE NAME: ZAPAIN
     Route: 048

REACTIONS (1)
  - PSYCHOTIC DISORDER [None]
